FAERS Safety Report 17792373 (Version 1)
Quarter: 2020Q2

REPORT INFORMATION
  Report Type: Report from Study
  Country: IT (occurrence: IT)
  Receive Date: 20200515
  Receipt Date: 20200515
  Transmission Date: 20200714
  Serious: Yes (Other)
  Sender: FDA-Public Use
  Company Number: IT-ROCHE-2544205

PATIENT
  Age: 81 Year
  Sex: Male

DRUGS (4)
  1. CAPECITABINE. [Suspect]
     Active Substance: CAPECITABINE
     Indication: ADENOCARCINOMA OF COLON
     Route: 048
     Dates: start: 20200107, end: 20200121
  2. OXALIPLATIN. [Concomitant]
     Active Substance: OXALIPLATIN
     Indication: ADENOCARCINOMA OF COLON
     Route: 042
     Dates: start: 20191217, end: 20200128
  3. FOLIC ACID. [Concomitant]
     Active Substance: FOLIC ACID
     Indication: ADENOCARCINOMA OF COLON
     Route: 042
     Dates: start: 20191217, end: 20200128
  4. FLUOROURACIL. [Concomitant]
     Active Substance: FLUOROURACIL
     Indication: ADENOCARCINOMA OF COLON
     Route: 042
     Dates: start: 20191217, end: 20200128

REACTIONS (1)
  - Porphyria non-acute [Recovering/Resolving]

NARRATIVE: CASE EVENT DATE: 20200123
